FAERS Safety Report 23656936 (Version 2)
Quarter: 2025Q3

REPORT INFORMATION
  Report Type: Spontaneous
  Country: GB (occurrence: GB)
  Receive Date: 20240321
  Receipt Date: 20250806
  Transmission Date: 20251020
  Serious: Yes (Other)
  Sender: NORDIC PHARMA
  Company Number: GB-002147023-NVSC2023GB231647

PATIENT
  Sex: Male

DRUGS (2)
  1. METHOTREXATE [Suspect]
     Active Substance: METHOTREXATE
     Indication: Product used for unknown indication
     Route: 065
  2. SECUKINUMAB [Concomitant]
     Active Substance: SECUKINUMAB
     Indication: Peripheral spondyloarthritis
     Route: 042

REACTIONS (2)
  - Guillain-Barre syndrome [Unknown]
  - Polyneuropathy chronic [Unknown]
